FAERS Safety Report 15875864 (Version 1)
Quarter: 2019Q1

REPORT INFORMATION
  Report Type: Spontaneous
  Country: GB (occurrence: GB)
  Receive Date: 20190126
  Receipt Date: 20190126
  Transmission Date: 20190417
  Serious: Yes (Hospitalization)
  Sender: FDA-Public Use
  Company Number: PHHY2019GB016845

PATIENT
  Age: 72 Year
  Sex: Male
  Weight: 72 kg

DRUGS (1)
  1. CO-AMOXICLAV [Suspect]
     Active Substance: AMOXICILLIN\CLAVULANATE POTASSIUM
     Indication: POSTOPERATIVE WOUND INFECTION
     Dosage: 1875 MG, QD
     Route: 048
     Dates: start: 20181018, end: 20181118

REACTIONS (2)
  - Liver function test abnormal [Recovering/Resolving]
  - Jaundice cholestatic [Recovered/Resolved with Sequelae]

NARRATIVE: CASE EVENT DATE: 20181118
